FAERS Safety Report 5235050-9 (Version None)
Quarter: 2007Q1

REPORT INFORMATION
  Report Type: 
  Country: None (occurrence: None)
  Receive Date: 20070207
  Receipt Date: 20070201
  Transmission Date: 20070707
  Serious: Yes (Hospitalization)
  Sender: FDA-Public Use
  Company Number: TPA2007A00196

PATIENT
  Age: 62 Year
  Sex: Female
  Weight: 68.0396 kg

DRUGS (1)
  1. ACTOS [Suspect]
     Indication: DIABETES MELLITUS NON-INSULIN-DEPENDENT
     Dosage: 15 MG, 1 IN 1 D, PER  ORAL
     Dates: start: 20060701

REACTIONS (5)
  - HEAD INJURY [None]
  - HEADACHE [None]
  - HYPERTENSION [None]
  - MUSCLE INJURY [None]
  - ROAD TRAFFIC ACCIDENT [None]
